FAERS Safety Report 5744894-6 (Version None)
Quarter: 2008Q2

REPORT INFORMATION
  Report Type: 
  Country: None (occurrence: None)
  Receive Date: 20080516
  Receipt Date: 20080506
  Transmission Date: 20081010
  Serious: Yes (Hospitalization)
  Sender: FDA-Public Use
  Company Number: 2006-00981

PATIENT
  Age: 54 Year
  Sex: Female
  Weight: 44 kg

DRUGS (7)
  1. VELCADE [Suspect]
     Indication: T-CELL LYMPHOMA
     Dosage: 2.10 MG, INTRAVENOUS
     Route: 042
     Dates: start: 20060308, end: 20060405
  2. ADRIBLASTINE        (ADRIBLASTINE) INJECTION [Suspect]
     Dosage: 110.00 MG, INTRAVENOUS
     Route: 042
     Dates: start: 20060308, end: 20060405
  3. CYCLOPHOSPHAMIDE [Suspect]
     Dosage: 1700.00 MG, INTRAVENOUS
     Route: 042
     Dates: start: 20060308, end: 20060405
  4. ELDISINE [Suspect]
     Indication: T-CELL LYMPHOMA
     Dosage: 2.80 MG, INTRAVENOUS
     Route: 042
     Dates: start: 20060308, end: 20060405
  5. BLEOMYCIN SULFATE [Suspect]
     Indication: T-CELL LYMPHOMA
     Dosage: 10.00 MG, INTRAVENOUS
     Route: 042
     Dates: start: 20060308, end: 20060405
  6. SOLU-MEDROL [Suspect]
     Indication: T-CELL LYMPHOMA
     Dosage: 120.00 MG, INTRAVENOUS
     Route: 042
     Dates: start: 20060308, end: 20060405
  7. GRANOCYTE 13-34 (LENOGRASTIM) [Suspect]
     Indication: T-CELL LYMPHOMA
     Dosage: 263 MG, SUBCUTANEOUS
     Route: 058
     Dates: start: 20060313, end: 20060410

REACTIONS (6)
  - ANAEMIA [None]
  - ASTHENIA [None]
  - FEBRILE NEUTROPENIA [None]
  - MUCOSAL INFLAMMATION [None]
  - OESOPHAGITIS [None]
  - THROMBOCYTOPENIA [None]
